FAERS Safety Report 5764991-9 (Version None)
Quarter: 2008Q2

REPORT INFORMATION
  Report Type: 
  Country: None (occurrence: None)
  Receive Date: 20080611
  Receipt Date: 20080603
  Transmission Date: 20081010
  Serious: Yes (Hospitalization)
  Sender: FDA-Public Use
  Company Number: JP-ASTRAZENECA-2008AP02008

PATIENT
  Age: 29021 Day
  Sex: Female
  Weight: 51 kg

DRUGS (6)
  1. IRESSA [Suspect]
     Indication: LUNG ADENOCARCINOMA
     Route: 048
     Dates: start: 20080118
  2. RADIOTHERAPY [Suspect]
  3. CALSLOT [Concomitant]
     Route: 048
     Dates: start: 20070906
  4. LENDORMIN [Concomitant]
     Route: 048
     Dates: start: 20070906
  5. CLEANAL [Concomitant]
     Route: 048
     Dates: start: 20071002
  6. PREDONINE [Concomitant]
     Route: 048
     Dates: start: 20080107

REACTIONS (2)
  - PLEURISY [None]
  - PNEUMONIA [None]
